FAERS Safety Report 5945186-2 (Version None)
Quarter: 2008Q4

REPORT INFORMATION
  Report Type: 
  Country: None (occurrence: None)
  Receive Date: 20081107
  Receipt Date: 20081030
  Transmission Date: 20090506
  Serious: Yes (Other)
  Sender: FDA-Public Use
  Company Number: B0544821A

PATIENT

DRUGS (1)
  1. TRIZIVIR [Suspect]
     Indication: HIV INFECTION
     Route: 048

REACTIONS (1)
  - MYOCARDIAL INFARCTION [None]
